FAERS Safety Report 17143296 (Version 1)
Quarter: 2019Q4

REPORT INFORMATION
  Report Type: Spontaneous
  Country: IT (occurrence: IT)
  Receive Date: 20191212
  Receipt Date: 20191212
  Transmission Date: 20200122
  Serious: Yes (Hospitalization, Other)
  Sender: FDA-Public Use
  Company Number: IT-MYLANLABS-2019M1120290

PATIENT
  Age: 67 Year
  Sex: Female

DRUGS (4)
  1. CYCLOPHOSPHAMIDE. [Suspect]
     Active Substance: CYCLOPHOSPHAMIDE
     Indication: GRANULOMATOSIS WITH POLYANGIITIS
     Dosage: 100 MILLIGRAM, QD
  2. VITAMIN B12 [Concomitant]
     Active Substance: CYANOCOBALAMIN
     Indication: VITAMIN SUPPLEMENTATION
     Dosage: UNK
  3. FOLATE [Concomitant]
     Active Substance: FOLATE SODIUM
     Indication: VITAMIN SUPPLEMENTATION
     Dosage: UNK
  4. PREDNISONE. [Suspect]
     Active Substance: PREDNISONE
     Indication: GRANULOMATOSIS WITH POLYANGIITIS
     Dosage: UNK

REACTIONS (4)
  - Diabetes mellitus [Recovering/Resolving]
  - Dysphoria [Unknown]
  - Pneumonia [Recovered/Resolved]
  - Epstein-Barr virus infection [Recovered/Resolved]
